FAERS Safety Report 11080636 (Version 1)
Quarter: 2015Q2

REPORT INFORMATION
  Report Type: Spontaneous
  Country: US (occurrence: None)
  Receive Date: 20150430
  Receipt Date: 20150430
  Transmission Date: 20150821
  Serious: No
  Sender: FDA-Public Use
  Company Number: None

PATIENT
  Age: 61 Year
  Sex: Male
  Weight: 67.13 kg

DRUGS (1)
  1. PPD [Suspect]
     Active Substance: TUBERCULIN PURIFIED PROTEIN DERIVATIVE
     Indication: TUBERCULIN TEST

REACTIONS (10)
  - Feeling of body temperature change [None]
  - Body temperature increased [None]
  - Decreased appetite [None]
  - Headache [None]
  - Cough [None]
  - Pyrexia [None]
  - Asthenia [None]
  - Fatigue [None]
  - Oropharyngeal pain [None]
  - Malaise [None]

NARRATIVE: CASE EVENT DATE: 20150421
